FAERS Safety Report 4280701-9 (Version None)
Quarter: 2004Q1

REPORT INFORMATION
  Report Type: 
  Country: None (occurrence: None)
  Receive Date: 20040127
  Receipt Date: 20031223
  Transmission Date: 20041129
  Serious: Yes (Hospitalization)
  Sender: FDA-Public Use
  Company Number: 200314394

PATIENT
  Age: 34 Year
  Sex: Female
  Weight: 45.3597 kg

DRUGS (1)
  1. BOTOX [Suspect]
     Indication: SKIN WRINKLING

REACTIONS (10)
  - COUGH [None]
  - DRUG INEFFECTIVE [None]
  - DYSPNOEA [None]
  - EYE SWELLING [None]
  - FACE OEDEMA [None]
  - HEADACHE [None]
  - PNEUMONIA [None]
  - SINUSITIS [None]
  - SKIN DISCOLOURATION [None]
  - VIRAL UPPER RESPIRATORY TRACT INFECTION [None]
